FAERS Safety Report 7010857-6 (Version None)
Quarter: 2010Q3

REPORT INFORMATION
  Report Type: 
  Country: None (occurrence: None)
  Receive Date: 20100923
  Receipt Date: 20100923
  Transmission Date: 20110219
  Serious: No
  Sender: FDA-Public Use
  Company Number: None

PATIENT
  Age: 79 Year
  Sex: Male
  Weight: 90.7194 kg

DRUGS (1)
  1. NOVOLOG MIX 70/30 [Suspect]
     Indication: DIABETES MELLITUS
     Dosage: 40 UNITS TWICE DAILY SQ
     Route: 058
     Dates: start: 19980101

REACTIONS (2)
  - INCORRECT PRODUCT STORAGE [None]
  - SYRINGE ISSUE [None]
